FAERS Safety Report 7065080 (Version 2)
Quarter: 2013Q1

REPORT INFORMATION
  Report Type: Spontaneous
  Country: IT (occurrence: None)
  Receive Date: 20090717
  Receipt Date: 20130115
  Transmission Date: 20140127
  Serious: Yes (Other)
  Sender: FDA-Public Use
  Company Number: 2009AP002597

PATIENT
  Age: 6 Year
  Sex: Male

DRUGS (1)
  1. TOPIRAMATE [Suspect]
     Indication: PARTIAL SEIZURES

REACTIONS (6)
  - Hypohidrosis [None]
  - Temperature intolerance [None]
  - Erythema [None]
  - Dry skin [None]
  - Fatigue [None]
  - Irritability [None]
